FAERS Safety Report 21939919 (Version 2)
Quarter: 2023Q1

REPORT INFORMATION
  Report Type: Report from Study
  Country: None (occurrence: CN)
  Receive Date: 20230201
  Receipt Date: 20230228
  Transmission Date: 20230417
  Serious: Yes (Hospitalization)
  Sender: FDA-Public Use
  Company Number: CN-Jiangsu Hengrui Medicine Co., Ltd.-2137381

PATIENT
  Age: 71 Year
  Sex: Male
  Weight: 83 kg

DRUGS (5)
  1. OXALIPLATIN [Suspect]
     Active Substance: OXALIPLATIN
     Indication: Gastric cancer
     Route: 041
     Dates: start: 20220923, end: 20230111
  2. SERPLULIMAB [Suspect]
     Active Substance: SERPLULIMAB
     Route: 041
     Dates: start: 20220923, end: 20230111
  3. GIMERACIL\OTERACIL\TEGAFUR [Suspect]
     Active Substance: GIMERACIL\OTERACIL\TEGAFUR
     Route: 048
     Dates: start: 20220923, end: 20230116
  4. Ondansetron Hydrochloride Injection [Concomitant]
  5. APREPITANT [Concomitant]
     Active Substance: APREPITANT
     Dates: start: 20230111, end: 20230113

REACTIONS (1)
  - Upper gastrointestinal haemorrhage [Recovering/Resolving]

NARRATIVE: CASE EVENT DATE: 20230116
